FAERS Safety Report 8813225 (Version 3)
Quarter: 2013Q1

REPORT INFORMATION
  Report Type: Spontaneous
  Country: US (occurrence: US)
  Receive Date: 20120927
  Receipt Date: 20130108
  Transmission Date: 20140127
  Serious: Yes (Other)
  Sender: FDA-Public Use
  Company Number: US-AMGEN-USASP2012039010

PATIENT
  Age: 63 Year
  Sex: Female
  Weight: 90.7 kg

DRUGS (10)
  1. PROLIA [Suspect]
     Indication: OSTEOPOROSIS POSTMENOPAUSAL
     Dosage: 60 MG, Q6MO
     Route: 058
     Dates: start: 20111209, end: 20120623
  2. PROLIA [Suspect]
     Indication: BONE LOSS
  3. ANTIHYPERTENSIVES [Concomitant]
  4. FEMARA [Concomitant]
     Indication: BREAST CANCER
     Dosage: 2.5 MG, UNK
  5. HYDROCHLOROTHIAZIDE [Concomitant]
     Indication: HYPERTENSION
     Dosage: 25 MG, QD
     Route: 048
  6. CALCIUM [Concomitant]
  7. VITAMIN D /00107901/ [Concomitant]
  8. MULTIVITAMIN                       /00097801/ [Concomitant]
  9. MAGNESIUM [Concomitant]
  10. POTASSIUM [Concomitant]

REACTIONS (5)
  - Gait disturbance [Unknown]
  - Activities of daily living impaired [Unknown]
  - Pain in extremity [Recovering/Resolving]
  - Muscle spasms [Recovered/Resolved]
  - Injection site pain [Unknown]
